FAERS Safety Report 13985826 (Version 1)
Quarter: 2017Q3

REPORT INFORMATION
  Report Type: Spontaneous
  Country: US (occurrence: US)
  Receive Date: 20170919
  Receipt Date: 20170919
  Transmission Date: 20171128
  Serious: No
  Sender: FDA-Public Use
  Company Number: US-PFIZER INC-2017399322

PATIENT
  Age: 75 Year
  Sex: Female
  Weight: 67.59 kg

DRUGS (5)
  1. OXYCODONE [Concomitant]
     Active Substance: OXYCODONE
     Indication: BACK PAIN
     Dosage: 5 MG, UNK(5MG TAB ONLY ONE OR TWO TIMES A DAY)
     Route: 048
     Dates: start: 201506
  2. ONDANSETRON [Concomitant]
     Active Substance: ONDANSETRON
     Indication: NAUSEA
     Dosage: 8 MG, AS NEEDED(8MG DISSOLVING TABLET AS NEEDED)
     Route: 048
     Dates: start: 201506
  3. ANASTROZOLE. [Concomitant]
     Active Substance: ANASTROZOLE
     Indication: AROMATASE INHIBITION THERAPY
     Dosage: 1 MG, UNK(1MG TABLET EVERY NIGHT)
     Route: 048
     Dates: start: 201506
  4. IBRANCE [Suspect]
     Active Substance: PALBOCICLIB
     Indication: AROMATASE INHIBITION THERAPY
     Dosage: 100 MG, CYCLIC (ONCE A DAY FOR 21 DAYS AND THEN 7 DAYS OFF)
     Route: 048
     Dates: start: 201506
  5. VENLAFAXINE HCL [Concomitant]
     Active Substance: VENLAFAXINE HYDROCHLORIDE
     Indication: DEPRESSION
     Dosage: 37.5 MG, DAILY (37.5MG CAPSULE ONE A DAY)
     Route: 048
     Dates: start: 201506

REACTIONS (1)
  - Back pain [Unknown]
